FAERS Safety Report 11018377 (Version 2)
Quarter: 2015Q2

REPORT INFORMATION
  Report Type: Spontaneous
  Country: US (occurrence: US)
  Receive Date: 20150412
  Receipt Date: 20150524
  Transmission Date: 20150821
  Serious: Yes (Other)
  Sender: FDA-Public Use
  Company Number: US-JNJFOC-20140811881

PATIENT

DRUGS (25)
  1. TH-302 [Suspect]
     Active Substance: EVOFOSFAMIDE
     Indication: SARCOMA
     Route: 042
  2. TH-302 [Suspect]
     Active Substance: EVOFOSFAMIDE
     Indication: MALIGNANT FIBROUS HISTIOCYTOMA
     Dosage: MTD WAS 575 MG/ M2
     Route: 042
  3. TH-302 [Suspect]
     Active Substance: EVOFOSFAMIDE
     Indication: LIPOSARCOMA
     Route: 042
  4. DOXORUBICIN [Suspect]
     Active Substance: DOXORUBICIN
     Indication: FIBROSARCOMA
     Dosage: ON DAY 1, 2 HOUR AFTER TH-302 EVERY 21 DAYS FOR UP TO 6 CYCLES
     Route: 042
  5. TH-302 [Suspect]
     Active Substance: EVOFOSFAMIDE
     Indication: FIBROSARCOMA
     Dosage: MTD WAS 575 MG/ M2
     Route: 042
  6. TH-302 [Suspect]
     Active Substance: EVOFOSFAMIDE
     Indication: LEIOMYOSARCOMA
     Route: 042
  7. DOXORUBICIN [Suspect]
     Active Substance: DOXORUBICIN
     Indication: SYNOVIAL SARCOMA
     Dosage: ON DAY 1, 2 HOUR AFTER TH-302 EVERY 21 DAYS FOR UP TO 6 CYCLES
     Route: 042
  8. DOXORUBICIN [Suspect]
     Active Substance: DOXORUBICIN
     Indication: LEIOMYOSARCOMA
     Dosage: ON DAY 1, 2 HOUR AFTER TH-302 EVERY 21 DAYS FOR UP TO 6 CYCLES
     Route: 042
  9. TH-302 [Suspect]
     Active Substance: EVOFOSFAMIDE
     Indication: SARCOMA
     Route: 042
  10. TH-302 [Suspect]
     Active Substance: EVOFOSFAMIDE
     Indication: SARCOMA
     Dosage: MTD WAS 575 MG/ M2
     Route: 042
  11. DOXORUBICIN [Suspect]
     Active Substance: DOXORUBICIN
     Indication: SARCOMA
     Dosage: ON DAY 1, 2 HOUR AFTER TH-302 EVERY 21 DAYS FOR UP TO 6 CYCLES
     Route: 042
  12. TH-302 [Suspect]
     Active Substance: EVOFOSFAMIDE
     Indication: FIBROSARCOMA
     Route: 042
  13. TH-302 [Suspect]
     Active Substance: EVOFOSFAMIDE
     Indication: SYNOVIAL SARCOMA
     Dosage: MTD WAS 575 MG/ M2
     Route: 042
  14. TH-302 [Suspect]
     Active Substance: EVOFOSFAMIDE
     Indication: SYNOVIAL SARCOMA
     Route: 042
  15. TH-302 [Suspect]
     Active Substance: EVOFOSFAMIDE
     Indication: LIPOSARCOMA
     Route: 042
  16. DOXORUBICIN [Suspect]
     Active Substance: DOXORUBICIN
     Indication: LIPOSARCOMA
     Dosage: ON DAY 1, 2 HOUR AFTER TH-302 EVERY 21 DAYS FOR UP TO 6 CYCLES
     Route: 042
  17. TH-302 [Suspect]
     Active Substance: EVOFOSFAMIDE
     Indication: MALIGNANT FIBROUS HISTIOCYTOMA
     Route: 042
  18. DOXORUBICIN [Suspect]
     Active Substance: DOXORUBICIN
     Indication: MALIGNANT FIBROUS HISTIOCYTOMA
     Dosage: ON DAY 1, 2 HOUR AFTER TH-302 EVERY 21 DAYS FOR UP TO 6 CYCLES
     Route: 042
  19. TH-302 [Suspect]
     Active Substance: EVOFOSFAMIDE
     Indication: FIBROSARCOMA
     Route: 042
  20. TH-302 [Suspect]
     Active Substance: EVOFOSFAMIDE
     Indication: SYNOVIAL SARCOMA
     Route: 042
  21. TH-302 [Suspect]
     Active Substance: EVOFOSFAMIDE
     Indication: LEIOMYOSARCOMA
     Route: 042
  22. G-CSF [Concomitant]
     Active Substance: GRANULOCYTE COLONY-STIMULATING FACTOR NOS
     Indication: PROPHYLAXIS
     Route: 065
  23. TH-302 [Suspect]
     Active Substance: EVOFOSFAMIDE
     Indication: MALIGNANT FIBROUS HISTIOCYTOMA
     Route: 042
  24. TH-302 [Suspect]
     Active Substance: EVOFOSFAMIDE
     Indication: LIPOSARCOMA
     Dosage: MTD WAS 575 MG/ M2
     Route: 042
  25. TH-302 [Suspect]
     Active Substance: EVOFOSFAMIDE
     Indication: LEIOMYOSARCOMA
     Dosage: MTD WAS 575 MG/ M2
     Route: 042

REACTIONS (19)
  - Fatigue [Unknown]
  - Constipation [Unknown]
  - Alopecia [Unknown]
  - Disease progression [Unknown]
  - Stomatitis [Unknown]
  - Lymphopenia [Unknown]
  - Nausea [Unknown]
  - Back pain [Unknown]
  - Skin hyperpigmentation [Unknown]
  - Abdominal pain [Unknown]
  - Rash maculo-papular [Unknown]
  - Pyrexia [Unknown]
  - Neutropenia [Unknown]
  - Dizziness [Unknown]
  - Thrombocytopenia [Unknown]
  - Product use issue [Unknown]
  - Anaemia [Unknown]
  - Decreased appetite [Unknown]
  - Hypoalbuminaemia [Unknown]
